FAERS Safety Report 4392543-4 (Version None)
Quarter: 2004Q3

REPORT INFORMATION
  Report Type: 
  Country: None (occurrence: None)
  Receive Date: 20040702
  Receipt Date: 20040227
  Transmission Date: 20050211
  Serious: Yes (Other)
  Sender: FDA-Public Use
  Company Number: 2004UW03580

PATIENT
  Age: 71 Year
  Sex: Female
  Weight: 68.0396 kg

DRUGS (4)
  1. CRESTOR [Suspect]
     Indication: BLOOD CHOLESTEROL INCREASED
     Dosage: 10 MG PO
     Route: 048
     Dates: start: 20031101
  2. WATER PILL WITH HCTZ [Concomitant]
  3. ANXIETY MEDICATION [Concomitant]
  4. GLUCOPHAGE [Concomitant]

REACTIONS (3)
  - MULTIPLE ALLERGIES [None]
  - NASOPHARYNGITIS [None]
  - RHINORRHOEA [None]
